FAERS Safety Report 5959281-5 (Version None)
Quarter: 2008Q4

REPORT INFORMATION
  Report Type: 
  Country: None (occurrence: None)
  Receive Date: 20081120
  Receipt Date: 20081113
  Transmission Date: 20090506
  Serious: Yes (Other)
  Sender: FDA-Public Use
  Company Number: DE-BRISTOL-MYERS SQUIBB COMPANY-14406706

PATIENT
  Age: 3 Week
  Sex: Female

DRUGS (1)
  1. ABILIFY [Suspect]
     Route: 064

REACTIONS (2)
  - HEARING IMPAIRED [None]
  - PREGNANCY [None]
